FAERS Safety Report 12654299 (Version 1)
Quarter: 2016Q3

REPORT INFORMATION
  Report Type: Spontaneous
  Country: US (occurrence: None)
  Receive Date: 20160815
  Receipt Date: 20160815
  Transmission Date: 20161109
  Serious: Yes (Disabling)
  Sender: FDA-Public Use
  Company Number: None

PATIENT
  Age: 49 Year
  Sex: Male
  Weight: 77.11 kg

DRUGS (8)
  1. HCTZ [Concomitant]
     Active Substance: HYDROCHLOROTHIAZIDE
  2. ZOPENEX [Concomitant]
  3. FLAXSEED [Concomitant]
     Active Substance: FLAX SEED
  4. LISINOPRIL. [Concomitant]
     Active Substance: LISINOPRIL
  5. ZANTAC [Concomitant]
     Active Substance: RANITIDINE HYDROCHLORIDE
  6. VITAMIN D [Concomitant]
     Active Substance: CHOLECALCIFEROL
  7. MONTELUKAST TEVA [Suspect]
     Active Substance: MONTELUKAST SODIUM
     Indication: ASTHMA
     Dosage: 1 TABLET AT BEDTIME
     Route: 048
  8. VITAMIN AREDS [Concomitant]

REACTIONS (1)
  - Depressed mood [None]

NARRATIVE: CASE EVENT DATE: 20160725
